FAERS Safety Report 10258218 (Version 3)
Quarter: 2017Q3

REPORT INFORMATION
  Report Type: Spontaneous
  Country: US (occurrence: US)
  Receive Date: 20140625
  Receipt Date: 20170814
  Transmission Date: 20171127
  Serious: Yes (Hospitalization, Disabling, Other)
  Sender: FDA-Public Use
  Company Number: US-009507513-1406USA010257

PATIENT
  Sex: Female

DRUGS (1)
  1. FOSAMAX [Suspect]
     Active Substance: ALENDRONATE SODIUM
     Indication: BONE DENSITY ABNORMAL
     Dosage: 1 DF, UNK
     Route: 048
     Dates: end: 20110612

REACTIONS (5)
  - Bone disorder [Unknown]
  - Joint injury [Unknown]
  - Femur fracture [Recovering/Resolving]
  - Exostosis [Unknown]
  - Femur fracture [Unknown]

NARRATIVE: CASE EVENT DATE: 2008
